FAERS Safety Report 18146370 (Version 1)
Quarter: 2020Q3

REPORT INFORMATION
  Report Type: Spontaneous
  Country: GB (occurrence: GB)
  Receive Date: 20200813
  Receipt Date: 20200813
  Transmission Date: 20201103
  Serious: Yes (Hospitalization, Other)
  Sender: FDA-Public Use
  Company Number: GB-PERRIGO-20GB011063

PATIENT
  Age: 15 Year
  Sex: Female
  Weight: 36 kg

DRUGS (4)
  1. PIRITON [Concomitant]
     Active Substance: CHLORPHENIRAMINE MALEATE
  2. BENADRYL ALLERGY RELIEF [Concomitant]
  3. RANITIDINE HYDROCHLORIDE. [Suspect]
     Active Substance: RANITIDINE HYDROCHLORIDE
     Indication: ABDOMINAL DISCOMFORT
     Route: 048
     Dates: start: 201907, end: 201907
  4. OMEPRAZOLE. [Concomitant]
     Active Substance: OMEPRAZOLE

REACTIONS (6)
  - Cardiac murmur [Recovered/Resolved]
  - Speech disorder [Recovered/Resolved]
  - Fatigue [Recovered/Resolved]
  - Feeling abnormal [Unknown]
  - Emotional poverty [Unknown]
  - Dyskinesia [Recovered/Resolved]
